FAERS Safety Report 25725038 (Version 1)
Quarter: 2025Q3

REPORT INFORMATION
  Report Type: Spontaneous
  Country: EU (occurrence: EU)
  Receive Date: 20250826
  Receipt Date: 20250826
  Transmission Date: 20251021
  Serious: Yes (Other)
  Sender: ALKEM
  Company Number: EU-ALKEM LABORATORIES LIMITED-DE-ALKEM-2025-07316

PATIENT

DRUGS (2)
  1. PREGABALIN [Suspect]
     Active Substance: PREGABALIN
     Indication: Herpes zoster
     Dosage: 200 MILLIGRAM, QD
     Route: 048
     Dates: start: 20250530, end: 20250608
  2. PREGABALIN [Suspect]
     Active Substance: PREGABALIN
     Dosage: 125 MILLIGRAM, QD (CAPSULE)
     Route: 048
     Dates: start: 20250522

REACTIONS (2)
  - Alanine aminotransferase increased [Not Recovered/Not Resolved]
  - Hepatic enzyme increased [Not Recovered/Not Resolved]
